FAERS Safety Report 16843836 (Version 1)
Quarter: 2019Q3

REPORT INFORMATION
  Report Type: Report from Study
  Country: ES (occurrence: ES)
  Receive Date: 20190924
  Receipt Date: 20190924
  Transmission Date: 20191005
  Serious: Yes (Other)
  Sender: FDA-Public Use
  Company Number: ES-BRISTOL-MYERS SQUIBB COMPANY-BMS-2019-089880

PATIENT
  Age: 83 Year
  Sex: Female

DRUGS (1)
  1. ABATACEPT [Suspect]
     Active Substance: ABATACEPT
     Indication: RHEUMATOID ARTHRITIS
     Dosage: 500 MG/ 4 SEMANAS
     Route: 042
     Dates: start: 20180706

REACTIONS (1)
  - Brain neoplasm malignant [Recovering/Resolving]

NARRATIVE: CASE EVENT DATE: 20190805
